FAERS Safety Report 7789847-1 (Version None)
Quarter: 2011Q3

REPORT INFORMATION
  Report Type: 
  Country: None (occurrence: None)
  Receive Date: 20110930
  Receipt Date: 20100817
  Transmission Date: 20111222
  Serious: No
  Sender: FDA-Public Use
  Company Number: US-ASTRAZENECA-2010SE38646

PATIENT
  Sex: Female

DRUGS (2)
  1. ARIMIDEX [Suspect]
     Route: 048
  2. TAMOXIFEN CITRATE [Suspect]
     Route: 048

REACTIONS (5)
  - OCULAR HYPERAEMIA [None]
  - ALOPECIA [None]
  - DRUG INTOLERANCE [None]
  - SKIN LESION [None]
  - PARAESTHESIA [None]
